FAERS Safety Report 18587883 (Version 3)
Quarter: 2021Q1

REPORT INFORMATION
  Report Type: Report from Study
  Country: US (occurrence: US)
  Receive Date: 20201207
  Receipt Date: 20210201
  Transmission Date: 20210419
  Serious: Yes (Death, Hospitalization, Other)
  Sender: FDA-Public Use
  Company Number: US-ASTELLAS-2020US042850

PATIENT
  Age: 48 Year
  Sex: Female

DRUGS (1)
  1. ASP2215 [Suspect]
     Active Substance: GILTERITINIB
     Indication: ACUTE MYELOID LEUKAEMIA RECURRENT
     Route: 048
     Dates: start: 20201113, end: 20210123

REACTIONS (5)
  - Pain [Unknown]
  - Muscle spasms [Unknown]
  - Oral fungal infection [Unknown]
  - Death [Fatal]
  - Muscular weakness [Unknown]

NARRATIVE: CASE EVENT DATE: 20210123
